FAERS Safety Report 5918708-5 (Version None)
Quarter: 2008Q4

REPORT INFORMATION
  Report Type: 
  Country: None (occurrence: None)
  Receive Date: 20081015
  Receipt Date: 20080617
  Transmission Date: 20090506
  Serious: No
  Sender: FDA-Public Use
  Company Number: US-ASTRAZENECA-2008UW12253

PATIENT
  Age: 15 Year
  Sex: Male

DRUGS (1)
  1. SYMBICORT [Suspect]
     Indication: WHEEZING
     Dosage: 80/4.5
     Route: 055
     Dates: start: 20080530

REACTIONS (2)
  - TONSILLAR HYPERTROPHY [None]
  - TRISMUS [None]
